FAERS Safety Report 11350463 (Version 3)
Quarter: 2016Q2

REPORT INFORMATION
  Report Type: Spontaneous
  Country: US (occurrence: US)
  Receive Date: 20150807
  Receipt Date: 20160516
  Transmission Date: 20160815
  Serious: Yes (Hospitalization, Other)
  Sender: FDA-Public Use
  Company Number: US-BAYER-2015-395024

PATIENT
  Age: 23 Year
  Sex: Female

DRUGS (1)
  1. MIRENA [Suspect]
     Active Substance: LEVONORGESTREL
     Dosage: 20 MCG/24HR, CONT
     Route: 015
     Dates: start: 20120201, end: 20131206

REACTIONS (5)
  - Device failure [None]
  - Device dislocation [None]
  - Device issue [None]
  - Device use error [None]
  - Device difficult to use [None]

NARRATIVE: CASE EVENT DATE: 2013
